FAERS Safety Report 5725713-0 (Version None)
Quarter: 2008Q2

REPORT INFORMATION
  Report Type: 
  Country: None (occurrence: None)
  Receive Date: 20080501
  Receipt Date: 20080423
  Transmission Date: 20081010
  Serious: Yes (Life-Threatening, Hospitalization)
  Sender: FDA-Public Use
  Company Number: FR-GENENTECH-259386

PATIENT
  Sex: Female

DRUGS (1)
  1. MABTHERA [Suspect]
     Indication: ANAEMIA HAEMOLYTIC AUTOIMMUNE
     Dosage: UNK, 1/WEEK
     Route: 042
     Dates: start: 20070605, end: 20070619

REACTIONS (3)
  - AGRANULOCYTOSIS [None]
  - INFECTION [None]
  - SEPTIC SHOCK [None]
